FAERS Safety Report 5338019-9 (Version None)
Quarter: 2007Q2

REPORT INFORMATION
  Report Type: 
  Country: None (occurrence: None)
  Receive Date: 20070530
  Receipt Date: 20070523
  Transmission Date: 20071010
  Serious: Yes (Death)
  Sender: FDA-Public Use
  Company Number: PHBS2007JP08584

PATIENT

DRUGS (1)
  1. CYCLOSPORINE [Suspect]
     Indication: APLASTIC ANAEMIA
     Route: 065

REACTIONS (1)
  - BILE DUCT CANCER [None]
